FAERS Safety Report 22380706 (Version 2)
Quarter: 2023Q4

REPORT INFORMATION
  Report Type: Spontaneous
  Country: US (occurrence: US)
  Receive Date: 20230529
  Receipt Date: 20231006
  Transmission Date: 20240109
  Serious: Yes (Hospitalization, Other)
  Sender: FDA-Public Use
  Company Number: US-BRISTOL-MYERS SQUIBB COMPANY-2023-074243

PATIENT
  Age: 63 Year
  Sex: Female
  Weight: 135.62 kg

DRUGS (2)
  1. ELIQUIS [Suspect]
     Active Substance: APIXABAN
     Indication: Pulmonary embolism
     Dosage: DOSE : UNAVAILABLE;     FREQ : 1 TABLET TWICE A DAY.
     Route: 048
     Dates: start: 202102
  2. METOPROLOL SUCCINATE [Concomitant]
     Active Substance: METOPROLOL SUCCINATE
     Indication: Product used for unknown indication

REACTIONS (5)
  - Red blood cell count decreased [Unknown]
  - White blood cell count decreased [Unknown]
  - Myocardial infarction [Unknown]
  - Groin pain [Unknown]
  - Blood disorder [Unknown]
